FAERS Safety Report 18359996 (Version 1)
Quarter: 2020Q4

REPORT INFORMATION
  Report Type: Spontaneous
  Country: US (occurrence: US)
  Receive Date: 20201008
  Receipt Date: 20201008
  Transmission Date: 20210114
  Serious: Yes (Death, Life-Threatening, Hospitalization, Other)
  Sender: FDA-Public Use
  Company Number: US-HIKMA PHARMACEUTICALS USA INC.-US-H14001-20-52270

PATIENT
  Age: 41 Year
  Sex: Female

DRUGS (19)
  1. HEPARIN [Suspect]
     Active Substance: HEPARIN SODIUM
     Route: 065
     Dates: start: 20181112, end: 20181112
  2. HEPARIN [Suspect]
     Active Substance: HEPARIN SODIUM
     Route: 065
     Dates: start: 20181113, end: 20181113
  3. ALTEPLASE. [Suspect]
     Active Substance: ALTEPLASE
     Indication: CEREBRAL VENOUS SINUS THROMBOSIS
     Dosage: TOTAL OF 3 DOSES
     Route: 065
     Dates: start: 201811, end: 201811
  4. HEPARIN [Suspect]
     Active Substance: HEPARIN SODIUM
     Route: 065
     Dates: start: 20181112, end: 20181112
  5. HEPARIN [Suspect]
     Active Substance: HEPARIN SODIUM
     Route: 065
     Dates: start: 20181114, end: 20181114
  6. DROSPIRENONE [Suspect]
     Active Substance: DROSPIRENONE
     Indication: ORAL CONTRACEPTION
     Dosage: UNKNOWN
     Route: 048
  7. HEPARIN [Suspect]
     Active Substance: HEPARIN SODIUM
     Route: 065
     Dates: start: 20181114, end: 20181117
  8. SALINE [Concomitant]
     Active Substance: SODIUM CHLORIDE
     Indication: PRODUCT USED FOR UNKNOWN INDICATION
     Dosage: ALTEPLASE 10 MG IN 510 ML OF NORMAL SALINE WAS ADMINISTERED AS A CONTINUOUS INFUSION VIA INTRA-SINUS
     Route: 065
     Dates: start: 201811, end: 201811
  9. HEPARIN [Suspect]
     Active Substance: HEPARIN SODIUM
     Indication: CEREBRAL VENOUS SINUS THROMBOSIS
     Route: 065
     Dates: start: 20181111, end: 20181112
  10. HEPARIN [Suspect]
     Active Substance: HEPARIN SODIUM
     Route: 065
     Dates: start: 20181111, end: 20181111
  11. HEPARIN [Suspect]
     Active Substance: HEPARIN SODIUM
     Route: 065
     Dates: start: 20181113, end: 20181114
  12. ALTEPLASE. [Suspect]
     Active Substance: ALTEPLASE
     Indication: CEREBRAL VENOUS SINUS THROMBOSIS
     Dosage: ALTEPLASE 10 MG IN 510 ML OF NORMAL SALINE WAS ADMINISTERED AS A CONTINUOUS INFUSION VIA INTRA-SINUS
     Route: 065
     Dates: start: 201811, end: 201811
  13. HEPARIN [Suspect]
     Active Substance: HEPARIN SODIUM
     Route: 065
     Dates: start: 20181109, end: 20181110
  14. HEPARIN [Suspect]
     Active Substance: HEPARIN SODIUM
     Route: 065
     Dates: start: 20181112, end: 20181113
  15. ETHINYLESTRADIOL [Suspect]
     Active Substance: ETHINYL ESTRADIOL
     Indication: ORAL CONTRACEPTION
     Dosage: UNKNOWN
     Route: 048
  16. HEPARIN [Suspect]
     Active Substance: HEPARIN SODIUM
     Route: 065
     Dates: start: 20181111, end: 20181111
  17. HEPARIN [Suspect]
     Active Substance: HEPARIN SODIUM
     Route: 065
     Dates: start: 20181117, end: 20181118
  18. HEPARIN [Suspect]
     Active Substance: HEPARIN SODIUM
     Route: 065
     Dates: start: 20181110, end: 20181110
  19. HEPARIN [Suspect]
     Active Substance: HEPARIN SODIUM
     Route: 065
     Dates: start: 20181113, end: 20181113

REACTIONS (3)
  - Intracranial pressure increased [Fatal]
  - Intraventricular haemorrhage [Fatal]
  - Hydrocephalus [Fatal]

NARRATIVE: CASE EVENT DATE: 201811
